FAERS Safety Report 14835720 (Version 1)
Quarter: 2018Q2

REPORT INFORMATION
  Report Type: Spontaneous
  Country: US (occurrence: US)
  Receive Date: 20180502
  Receipt Date: 20180502
  Transmission Date: 20180711
  Serious: Yes (Other)
  Sender: FDA-Public Use
  Company Number: US-009507513-1804USA013291

PATIENT
  Age: 66 Year
  Sex: Female

DRUGS (6)
  1. CLARINEX [Suspect]
     Active Substance: DESLORATADINE
     Indication: SEASONAL ALLERGY
     Dosage: 5MG (1 TABLET) A DAY
     Route: 048
     Dates: start: 2008, end: 201802
  2. CLARITIN [Suspect]
     Active Substance: LORATADINE
     Dosage: UNK
  3. ZYRTEC [Suspect]
     Active Substance: CETIRIZINE HYDROCHLORIDE
     Dosage: UNK
  4. ALLEGRA [Suspect]
     Active Substance: FEXOFENADINE HYDROCHLORIDE
     Dosage: UNK
  5. CLARINEX [Suspect]
     Active Substance: DESLORATADINE
     Dosage: UNK
     Route: 048
  6. ACCOLATE [Concomitant]
     Active Substance: ZAFIRLUKAST
     Dosage: UNK

REACTIONS (4)
  - Product availability issue [Unknown]
  - Drug ineffective [Unknown]
  - Urticaria [Unknown]
  - Pneumonia [Recovered/Resolved]
